FAERS Safety Report 16976058 (Version 1)
Quarter: 2019Q4

REPORT INFORMATION
  Report Type: Spontaneous
  Country: US (occurrence: US)
  Receive Date: 20191030
  Receipt Date: 20191030
  Transmission Date: 20200122
  Serious: No
  Sender: FDA-Public Use
  Company Number: US-BAUSCH-BL-2019-057551

PATIENT
  Age: 61 Year
  Sex: Male
  Weight: 83.54 kg

DRUGS (2)
  1. WELLBUTRIN XL [Suspect]
     Active Substance: BUPROPION HYDROCHLORIDE
     Indication: CHRONIC FATIGUE SYNDROME
  2. WELLBUTRIN XL [Suspect]
     Active Substance: BUPROPION HYDROCHLORIDE
     Indication: DEPRESSION
     Dosage: TAKING ON AN ^^ON AND OFF^^ BASIS
     Route: 048
     Dates: start: 2002

REACTIONS (1)
  - Insomnia [Not Recovered/Not Resolved]
